FAERS Safety Report 5591065-2 (Version None)
Quarter: 2008Q1

REPORT INFORMATION
  Report Type: 
  Country: None (occurrence: None)
  Receive Date: 20080115
  Receipt Date: 20080109
  Transmission Date: 20080703
  Serious: Yes (Other)
  Sender: FDA-Public Use
  Company Number: PHEH2006US02522

PATIENT
  Age: 63 Year
  Sex: Female

DRUGS (4)
  1. AREDIA [Suspect]
  2. ZOMETA [Suspect]
  3. BISPHOSPHONATES [Concomitant]
     Dates: end: 20050901
  4. XANAX [Concomitant]
     Indication: ANXIETY

REACTIONS (8)
  - EMOTIONAL DISTRESS [None]
  - EXOSTOSIS [None]
  - INJURY [None]
  - OSTEOMYELITIS [None]
  - OSTEONECROSIS [None]
  - PAIN IN JAW [None]
  - SWELLING [None]
  - TOOTH EXTRACTION [None]
